FAERS Safety Report 9910266 (Version 1)
Quarter: 2014Q1

REPORT INFORMATION
  Report Type: Spontaneous
  Country: US (occurrence: US)
  Receive Date: 20140219
  Receipt Date: 20140219
  Transmission Date: 20141002
  Serious: No
  Sender: FDA-Public Use
  Company Number: US-B.I. PHARMACEUTICALS,INC./RIDGEFIELD-2014-BI-07018BP

PATIENT
  Age: 65 Year
  Sex: Female

DRUGS (4)
  1. SPIRIVA [Suspect]
     Indication: EMPHYSEMA
     Dosage: 18 MCG
     Route: 055
     Dates: start: 20140117
  2. KLONOPIN [Concomitant]
     Indication: ANXIETY
     Route: 048
  3. PAXIL [Concomitant]
     Route: 048
  4. GABAPENTIN [Concomitant]
     Route: 048

REACTIONS (1)
  - Chest pain [Not Recovered/Not Resolved]
